FAERS Safety Report 7758184-3 (Version None)
Quarter: 2011Q3

REPORT INFORMATION
  Report Type: 
  Country: None (occurrence: None)
  Receive Date: 20110919
  Receipt Date: 20110913
  Transmission Date: 20111222
  Serious: No
  Sender: FDA-Public Use
  Company Number: US-BIOGENIDEC-2011BI035125

PATIENT
  Age: 51 Year
  Sex: Female

DRUGS (1)
  1. AVONEX [Suspect]
     Indication: MULTIPLE SCLEROSIS
     Route: 030
     Dates: start: 20110801

REACTIONS (5)
  - HYPOAESTHESIA [None]
  - HYPOAESTHESIA ORAL [None]
  - TOOTH DISORDER [None]
  - PARAESTHESIA ORAL [None]
  - FEELING HOT [None]
